FAERS Safety Report 24445460 (Version 1)
Quarter: 2024Q4

REPORT INFORMATION
  Report Type: Spontaneous
  Country: US (occurrence: None)
  Receive Date: 20241015
  Receipt Date: 20241015
  Transmission Date: 20250115
  Serious: Yes (Hospitalization)
  Sender: Public
  Company Number: None

PATIENT
  Age: 14 Year
  Sex: Male
  Weight: 60.3 kg

DRUGS (1)
  1. ISOTRETINOIN [Suspect]
     Active Substance: ISOTRETINOIN
     Indication: Acne cystic
     Dosage: FREQUENCY : DAILY;?
     Route: 048
     Dates: start: 20240430, end: 20241010

REACTIONS (6)
  - Abnormal behaviour [None]
  - Personality disorder [None]
  - Paranoia [None]
  - Anger [None]
  - Delusion [None]
  - Loss of personal independence in daily activities [None]

NARRATIVE: CASE EVENT DATE: 20241014
